FAERS Safety Report 19598776 (Version 1)
Quarter: 2021Q3

REPORT INFORMATION
  Report Type: Spontaneous
  Country: CA (occurrence: CA)
  Receive Date: 20210723
  Receipt Date: 20210723
  Transmission Date: 20211014
  Serious: Yes (Hospitalization)
  Sender: FDA-Public Use
  Company Number: CA-ORION CORPORATION ORION PHARMA-21_00015274

PATIENT
  Age: 62 Year
  Sex: Female
  Weight: 61 kg

DRUGS (1)
  1. METHOTREXATE (TRADE NAME UNKNOWN) [Suspect]
     Active Substance: METHOTREXATE
     Indication: PRODUCT USED FOR UNKNOWN INDICATION
     Route: 048

REACTIONS (4)
  - Drug-induced liver injury [Unknown]
  - Hepatotoxicity [Unknown]
  - Hepatic cirrhosis [Unknown]
  - Non-alcoholic steatohepatitis [Unknown]
